FAERS Safety Report 7197126-9 (Version None)
Quarter: 2010Q4

REPORT INFORMATION
  Report Type: 
  Country: None (occurrence: None)
  Receive Date: 20101224
  Receipt Date: 20101213
  Transmission Date: 20110411
  Serious: Yes (Other)
  Sender: FDA-Public Use
  Company Number: PHHY2010BR85088

PATIENT
  Sex: Male

DRUGS (2)
  1. DIOVAN [Suspect]
     Indication: HYPERTENSION
     Dosage: 320 MG, TABLET
     Dates: start: 20090701, end: 20091201
  2. ATENOLOL [Concomitant]
     Dosage: 50 MG, ONE TABLET
     Route: 048

REACTIONS (1)
  - HYPERTENSION [None]
